FAERS Safety Report 5284052-5 (Version None)
Quarter: 2007Q2

REPORT INFORMATION
  Report Type: 
  Country: None (occurrence: None)
  Receive Date: 20070402
  Receipt Date: 20070326
  Transmission Date: 20071010
  Serious: Yes (Other)
  Sender: FDA-Public Use
  Company Number: IT-PFIZER INC-2007025564

PATIENT
  Age: 25 Year
  Sex: Female

DRUGS (1)
  1. REACTINE DUO [Suspect]
     Indication: SEASONAL ALLERGY
     Route: 048
     Dates: start: 20070317, end: 20070317

REACTIONS (4)
  - HERPES SIMPLEX [None]
  - LYMPHADENOPATHY [None]
  - NAUSEA [None]
  - OCULAR HYPERAEMIA [None]
